FAERS Safety Report 7392554-0 (Version None)
Quarter: 2011Q2

REPORT INFORMATION
  Report Type: 
  Country: None (occurrence: None)
  Receive Date: 20110404
  Receipt Date: 20110329
  Transmission Date: 20111010
  Serious: Yes (Death)
  Sender: FDA-Public Use
  Company Number: DE-GENZYME-RENA-1001131

PATIENT
  Sex: Male
  Weight: 69 kg

DRUGS (15)
  1. OXAZEPAM [Concomitant]
     Indication: SLEEP DISORDER THERAPY
  2. RENVELA [Suspect]
     Dosage: UNK
  3. CALCITRIOL [Concomitant]
     Indication: VITAMIN D
     Dosage: 0.75 MCG, 3X/W
  4. ADDIVIT [Concomitant]
     Indication: VITAMIN SUPPLEMENTATION
     Dosage: 1 UNK, UNK
  5. GODAMED [Concomitant]
     Indication: ANTICOAGULANT THERAPY
     Dosage: 50 MG, QD
  6. MOVIPREP [Concomitant]
     Indication: HAEMATOCHEZIA
  7. CALCIUM ACETATE [Concomitant]
     Indication: BLOOD PHOSPHORUS ABNORMAL
     Dosage: 475 MG, TID
     Route: 065
  8. EPOGEN [Concomitant]
     Indication: PRODUCT USED FOR UNKNOWN INDICATION
  9. CALCITRIOL [Concomitant]
     Dosage: 0.5 MCG, 3X/W
  10. BETARECEPTOR BLOCKER [Concomitant]
     Indication: PRODUCT USED FOR UNKNOWN INDICATION
  11. IRON SUBSITUTION [Concomitant]
     Indication: MINERAL SUPPLEMENTATION
  12. CALCITRIOL [Concomitant]
     Dosage: 0.75 MCG, QW
  13. BISOPROLOL FUMARATE [Concomitant]
     Indication: HYPERTENSION
  14. OMEPRAZOLE [Concomitant]
     Indication: PROPHYLAXIS
     Dosage: 20 MG, QD
  15. RENVELA [Suspect]
     Indication: HYPERPHOSPHATAEMIA
     Dosage: 1.6 G, QD

REACTIONS (1)
  - FALL [None]
